FAERS Safety Report 5427995-1 (Version None)
Quarter: 2007Q3

REPORT INFORMATION
  Report Type: 
  Country: None (occurrence: None)
  Receive Date: 20070731
  Receipt Date: 20070521
  Transmission Date: 20080115
  Serious: No
  Sender: FDA-Public Use
  Company Number: US200705005515

PATIENT
  Age: 52 Year
  Sex: Female

DRUGS (2)
  1. BYETTA [Suspect]
     Indication: TYPE 2 DIABETES MELLITUS
     Dosage: 5 UG, 2/D, SUBCUTANEOUS, 10UG, 2/D, SUBCUTANEOUS
     Route: 058
     Dates: end: 20070501
  2. BYETTA [Suspect]
     Indication: TYPE 2 DIABETES MELLITUS
     Dosage: 5 UG, 2/D, SUBCUTANEOUS, 10UG, 2/D, SUBCUTANEOUS
     Route: 058
     Dates: start: 20070501

REACTIONS (3)
  - NAUSEA [None]
  - PAROSMIA [None]
  - VOMITING [None]
